FAERS Safety Report 4415150-3 (Version None)
Quarter: 2004Q3

REPORT INFORMATION
  Report Type: 
  Country: None (occurrence: None)
  Receive Date: 20040730
  Receipt Date: 20040715
  Transmission Date: 20050211
  Serious: Yes (Other)
  Sender: FDA-Public Use
  Company Number: B0339595A

PATIENT
  Age: 58 Year
  Sex: Female

DRUGS (5)
  1. NICODERM CQ [Suspect]
     Indication: SMOKING CESSATION THERAPY
     Dosage: 21 MG / PER DAY / TRANSDERMAL
     Route: 062
     Dates: start: 20040628, end: 20040729
  2. DIPYRIDAMOLE [Concomitant]
  3. NITROGLYCERIN [Concomitant]
  4. ASPIRIN [Concomitant]
  5. SIMVASTATIN [Concomitant]

REACTIONS (2)
  - CEREBROVASCULAR ACCIDENT [None]
  - TRANSIENT ISCHAEMIC ATTACK [None]
